FAERS Safety Report 9704517 (Version 1)
Quarter: 2013Q4

REPORT INFORMATION
  Report Type: Spontaneous
  Country: CA (occurrence: CA)
  Receive Date: 20131122
  Receipt Date: 20131122
  Transmission Date: 20140711
  Serious: Yes (Death, Hospitalization)
  Sender: FDA-Public Use
  Company Number: CA-B.I. PHARMACEUTICALS,INC./RIDGEFIELD-2013-BI-38421CN

PATIENT
  Age: 88 Year
  Sex: Male

DRUGS (1)
  1. PRADAX [Suspect]
     Dates: start: 2013

REACTIONS (3)
  - Gastrointestinal haemorrhage [Fatal]
  - Abdominal distension [Unknown]
  - Nasopharyngitis [Unknown]
